FAERS Safety Report 6505240-3 (Version None)
Quarter: 2009Q4

REPORT INFORMATION
  Report Type: 
  Country: None (occurrence: None)
  Receive Date: 20091218
  Receipt Date: 20091209
  Transmission Date: 20100525
  Serious: Yes (Hospitalization, Other)
  Sender: FDA-Public Use
  Company Number: FR-JNJFOC-20091203233

PATIENT
  Sex: Male

DRUGS (12)
  1. RISPERDAL [Suspect]
     Indication: DEMENTIA
     Route: 048
  2. RISPERDAL [Suspect]
     Route: 048
  3. ATARAX [Suspect]
     Indication: HYPERSENSITIVITY
     Route: 048
  4. LOXEN [Concomitant]
     Route: 065
  5. ATENOLOL [Concomitant]
     Route: 048
  6. FUROSEMIDE [Concomitant]
     Route: 065
  7. ALFACALCIDOL [Concomitant]
     Route: 065
  8. VITAMIN D [Concomitant]
     Route: 065
  9. CALCIUM [Concomitant]
     Route: 065
  10. VASTAREL [Concomitant]
     Route: 065
  11. KARDEGIC [Concomitant]
     Route: 065
  12. DAFALGAN [Concomitant]
     Route: 065

REACTIONS (5)
  - CONSTIPATION [None]
  - FALL [None]
  - MALAISE [None]
  - URINARY RETENTION [None]
  - URINARY TRACT INFECTION [None]
